FAERS Safety Report 14336996 (Version 1)
Quarter: 2017Q4

REPORT INFORMATION
  Report Type: Spontaneous
  Country: US (occurrence: US)
  Receive Date: 20171228
  Receipt Date: 20171228
  Transmission Date: 20180321
  Serious: Yes (Life-Threatening, Hospitalization)
  Sender: FDA-Public Use
  Company Number: None

PATIENT
  Age: 93 Year
  Sex: Female
  Weight: 60.75 kg

DRUGS (1)
  1. TRACLEER [Suspect]
     Active Substance: BOSENTAN
     Indication: PULMONARY HYPERTENSION
     Dates: start: 20170501, end: 20171101

REACTIONS (4)
  - Psychotic disorder [None]
  - Syncope [None]
  - Paranoia [None]
  - Wrist fracture [None]

NARRATIVE: CASE EVENT DATE: 20171101
